FAERS Safety Report 19505918 (Version 1)
Quarter: 2021Q3

REPORT INFORMATION
  Report Type: Spontaneous
  Country: US (occurrence: US)
  Receive Date: 20210708
  Receipt Date: 20210708
  Transmission Date: 20211014
  Serious: Yes (Other)
  Sender: FDA-Public Use
  Company Number: US-DRREDDYS-LIT/USA/21/0137573

PATIENT
  Age: 30 Year
  Sex: Male

DRUGS (9)
  1. VIGABATRIN. [Suspect]
     Active Substance: VIGABATRIN
     Indication: ASTROCYTOMA, LOW GRADE
  2. VALPROIC ACID. [Suspect]
     Active Substance: VALPROIC ACID
     Indication: TUBEROUS SCLEROSIS COMPLEX
  3. AFINITOR [Suspect]
     Active Substance: EVEROLIMUS
     Indication: TUBEROUS SCLEROSIS COMPLEX
  4. VIGABATRIN. [Suspect]
     Active Substance: VIGABATRIN
     Indication: TUBEROUS SCLEROSIS COMPLEX
  5. RISPERIDONE. [Suspect]
     Active Substance: RISPERIDONE
     Indication: TUBEROUS SCLEROSIS COMPLEX
  6. OXCARBAZEPINE EXTENDED RELEASE [Suspect]
     Active Substance: OXCARBAZEPINE
     Indication: PRODUCT USED FOR UNKNOWN INDICATION
  7. RISPERIDONE. [Suspect]
     Active Substance: RISPERIDONE
     Indication: ASTROCYTOMA, LOW GRADE
  8. VALPROIC ACID. [Suspect]
     Active Substance: VALPROIC ACID
     Indication: ASTROCYTOMA, LOW GRADE
  9. AFINITOR [Suspect]
     Active Substance: EVEROLIMUS
     Indication: ASTROCYTOMA, LOW GRADE

REACTIONS (2)
  - Type 2 diabetes mellitus [Recovering/Resolving]
  - Dyslipidaemia [Recovering/Resolving]
